FAERS Safety Report 4338482-6 (Version None)
Quarter: 2004Q2

REPORT INFORMATION
  Report Type: 
  Country: None (occurrence: None)
  Receive Date: 20040414
  Receipt Date: 20040129
  Transmission Date: 20050107
  Serious: Yes (Hospitalization)
  Sender: FDA-Public Use
  Company Number: US-GLAXOSMITHKLINE-A0495817A

PATIENT
  Age: 55 Year
  Sex: Female
  Weight: 79.5 kg

DRUGS (7)
  1. AVANDIA [Suspect]
     Indication: DIABETES MELLITUS
     Route: 048
     Dates: start: 20030201
  2. CLARINEX [Concomitant]
     Indication: HYPERSENSITIVITY
     Route: 048
     Dates: start: 20030101
  3. LEVOXYL [Concomitant]
     Indication: HYPOTHYROIDISM
     Route: 048
     Dates: start: 20010101
  4. OGEN [Concomitant]
  5. PROMETRIUM [Concomitant]
  6. GLUCOPHAGE [Concomitant]
     Route: 048
     Dates: start: 20031001
  7. FLONASE [Concomitant]
     Dates: start: 20010101

REACTIONS (12)
  - BREAST MASS [None]
  - CALCIPHYLAXIS [None]
  - FAT NECROSIS [None]
  - FIBROSIS [None]
  - HEPATIC STEATOSIS [None]
  - INFLAMMATION [None]
  - LYMPHOCYTIC INFILTRATION [None]
  - LYMPHOMA [None]
  - PANNICULITIS [None]
  - SOFT TISSUE DISORDER [None]
  - SUBCUTANEOUS NODULE [None]
  - VASCULITIS [None]
